FAERS Safety Report 9203485 (Version 1)
Quarter: 2013Q2

REPORT INFORMATION
  Report Type: Spontaneous
  Country: US (occurrence: US)
  Receive Date: 20130402
  Receipt Date: 20130402
  Transmission Date: 20140414
  Serious: Yes (Disabling)
  Sender: FDA-Public Use
  Company Number: US-PFIZER INC-2013104378

PATIENT
  Age: 50 Year
  Sex: Female
  Weight: 90.2 kg

DRUGS (5)
  1. LYRICA [Suspect]
     Indication: HERPES ZOSTER
     Dosage: 100 MG, 3X/DAY
     Dates: start: 2008
  2. LYRICA [Suspect]
     Indication: NERVE INJURY
  3. LYRICA [Suspect]
     Indication: POST HERPETIC NEURALGIA
  4. CYMBALTA [Concomitant]
     Indication: POST HERPETIC NEURALGIA
     Dosage: 30 MG, 2X/DAY
  5. ULTRAM [Concomitant]
     Indication: POST HERPETIC NEURALGIA
     Dosage: 50 MG, AS NEEDED

REACTIONS (2)
  - Herpes zoster [Unknown]
  - Nerve injury [Unknown]
